FAERS Safety Report 5078725-7 (Version None)
Quarter: 2006Q3

REPORT INFORMATION
  Report Type: 
  Country: None (occurrence: None)
  Receive Date: 20060720
  Receipt Date: 20060602
  Transmission Date: 20061208
  Serious: Yes (Other)
  Sender: FDA-Public Use
  Company Number: HQWYE985906JUN06

PATIENT
  Age: 72 Year
  Sex: Male
  Weight: 72.64 kg

DRUGS (3)
  1. ADVIL PM [Suspect]
     Indication: INSOMNIA
     Dosage: 1 CAPLET EVERY EVENING AT BEDTIME, ORAL
     Route: 048
     Dates: start: 20060501
  2. ADVIL PM [Suspect]
     Indication: PAIN
     Dosage: 1 CAPLET EVERY EVENING AT BEDTIME, ORAL
     Route: 048
     Dates: start: 20060501
  3. ADVIL [Concomitant]

REACTIONS (1)
  - DRUG EFFECT DECREASED [None]
